FAERS Safety Report 4848165-1 (Version None)
Quarter: 2005Q4

REPORT INFORMATION
  Report Type: 
  Country: None (occurrence: None)
  Receive Date: 20051206
  Receipt Date: 20051121
  Transmission Date: 20060501
  Serious: Yes (Hospitalization)
  Sender: FDA-Public Use
  Company Number: 2005PV003634

PATIENT
  Age: 60 Year
  Sex: Male
  Weight: 111.1313 kg

DRUGS (4)
  1. BYETTA [Suspect]
     Indication: DIABETES MELLITUS NON-INSULIN-DEPENDENT
     Dosage: 5 MCG, BID; SC
     Route: 058
     Dates: start: 20051001, end: 20051001
  2. AVANDIA [Concomitant]
  3. NOVOLOG [Concomitant]
  4. ATENOLOL [Concomitant]

REACTIONS (1)
  - PANCREATITIS [None]
